FAERS Safety Report 5584668-2 (Version None)
Quarter: 2008Q1

REPORT INFORMATION
  Report Type: 
  Country: None (occurrence: None)
  Receive Date: 20080108
  Receipt Date: 20080102
  Transmission Date: 20080703
  Serious: Yes (Disabling, Other)
  Sender: FDA-Public Use
  Company Number: BR-PFIZER INC-2007058592

PATIENT
  Sex: Male
  Weight: 120 kg

DRUGS (1)
  1. CELEBRA [Suspect]
     Indication: BACK PAIN
     Route: 048

REACTIONS (2)
  - INTERVERTEBRAL DISC OPERATION [None]
  - INTERVERTEBRAL DISC PROTRUSION [None]
